FAERS Safety Report 18029175 (Version 3)
Quarter: 2020Q3

REPORT INFORMATION
  Report Type: Other
  Country: CA (occurrence: CA)
  Receive Date: 20200716
  Receipt Date: 20200807
  Transmission Date: 20201103
  Serious: Yes (Hospitalization, Other)
  Sender: FDA-Public Use
  Company Number: CA-ROCHE-2595369

PATIENT
  Sex: Female

DRUGS (17)
  1. BIOTIN [Concomitant]
     Active Substance: BIOTIN
  2. NEXIUM [Concomitant]
     Active Substance: ESOMEPRAZOLE MAGNESIUM
  3. SINGULAIR [Concomitant]
     Active Substance: MONTELUKAST SODIUM
  4. TYLENOL WITH CODEINE [Concomitant]
     Active Substance: ACETAMINOPHEN\CODEINE PHOSPHATE
  5. GABAPENTIN. [Concomitant]
     Active Substance: GABAPENTIN
  6. LACTULOSE. [Concomitant]
     Active Substance: LACTULOSE
  7. NITROFURANTOIN. [Concomitant]
     Active Substance: NITROFURANTOIN
     Indication: CYSTITIS
  8. PREDNISONE. [Concomitant]
     Active Substance: PREDNISONE
  9. LOSEC [Concomitant]
     Active Substance: OMEPRAZOLE
  10. FOLIC ACID. [Concomitant]
     Active Substance: FOLIC ACID
  11. PLAVIX [Concomitant]
     Active Substance: CLOPIDOGREL BISULFATE
  12. ACTEMRA [Suspect]
     Active Substance: TOCILIZUMAB
     Route: 058
     Dates: start: 20200710
  13. ACTEMRA [Suspect]
     Active Substance: TOCILIZUMAB
     Indication: GIANT CELL ARTERITIS
     Route: 058
     Dates: start: 20200402, end: 2020
  14. ASPIRIN. [Concomitant]
     Active Substance: ASPIRIN
  15. TYLENOL WITH CODEINE [Concomitant]
     Active Substance: ACETAMINOPHEN\CODEINE PHOSPHATE
  16. DOCUSATE [Concomitant]
     Active Substance: DOCUSATE
  17. ACTONEL [Concomitant]
     Active Substance: RISEDRONATE SODIUM

REACTIONS (10)
  - Pulmonary oedema [Unknown]
  - Wound infection [Unknown]
  - Asthenia [Unknown]
  - Diarrhoea [Unknown]
  - Cellulitis [Unknown]
  - Malaise [Unknown]
  - Fatigue [Not Recovered/Not Resolved]
  - Nausea [Unknown]
  - Clostridium difficile infection [Unknown]
  - Dehydration [Unknown]
